FAERS Safety Report 15177930 (Version 1)
Quarter: 2018Q3

REPORT INFORMATION
  Report Type: Spontaneous
  Country: SE (occurrence: GB)
  Receive Date: 20180720
  Receipt Date: 20180720
  Transmission Date: 20181010
  Serious: Yes (Other)
  Sender: FDA-Public Use
  Company Number: SE-ANIPHARMA-2018-UK-000076

PATIENT
  Age: 70 Year
  Sex: Female

DRUGS (1)
  1. CANDESARTAN CILEXETIL. [Suspect]
     Active Substance: CANDESARTAN CILEXETIL
     Dosage: 16 MG QD / 32 MG QD
     Route: 048

REACTIONS (2)
  - Cerebral haemorrhage [Unknown]
  - Basal ganglia stroke [Unknown]
